FAERS Safety Report 6097314-9 (Version None)
Quarter: 2009Q1

REPORT INFORMATION
  Report Type: 
  Country: None (occurrence: None)
  Receive Date: 20090226
  Receipt Date: 20090226
  Transmission Date: 20090719
  Serious: Yes (Other)
  Sender: FDA-Public Use
  Company Number: None

PATIENT
  Age: 57 Year
  Sex: Female
  Weight: 62.1428 kg

DRUGS (1)
  1. CELEBREX [Suspect]
     Indication: PERIARTHRITIS
     Dosage: ONE CAPSULE TWICE/DAY PO
     Route: 048
     Dates: start: 20090220, end: 20090221

REACTIONS (5)
  - DIZZINESS [None]
  - FEAR [None]
  - NAUSEA [None]
  - PALPITATIONS [None]
  - TREMOR [None]
